FAERS Safety Report 7955430-8 (Version None)
Quarter: 2011Q4

REPORT INFORMATION
  Report Type: 
  Country: None (occurrence: None)
  Receive Date: 20111202
  Receipt Date: 20111125
  Transmission Date: 20120403
  Serious: Yes (Death)
  Sender: FDA-Public Use
  Company Number: VE-ROCHE-1016509

PATIENT
  Sex: Female
  Weight: 45 kg

DRUGS (1)
  1. MABTHERA [Suspect]
     Indication: RHEUMATOID ARTHRITIS
     Route: 042
     Dates: start: 20110811, end: 20111101

REACTIONS (6)
  - PROTEINURIA [None]
  - CONVULSION [None]
  - PYREXIA [None]
  - MYOCARDIAL INFARCTION [None]
  - ORAL CANDIDIASIS [None]
  - BONE MARROW FAILURE [None]
